FAERS Safety Report 20802482 (Version 1)
Quarter: 2022Q2

REPORT INFORMATION
  Report Type: Spontaneous
  Country: US (occurrence: None)
  Receive Date: 20220508
  Receipt Date: 20220508
  Transmission Date: 20220721
  Serious: Yes (Hospitalization, Disabling)
  Sender: FDA-Public Use
  Company Number: None

PATIENT
  Age: 13 Year
  Sex: Male
  Weight: 45 kg

DRUGS (4)
  1. ZOLOFT [Suspect]
     Active Substance: SERTRALINE HYDROCHLORIDE
     Indication: Anxiety
     Route: 048
     Dates: end: 20220322
  2. ZOLOFT [Suspect]
     Active Substance: SERTRALINE HYDROCHLORIDE
     Indication: Obsessive-compulsive disorder
  3. ZYPREXA [Suspect]
     Active Substance: OLANZAPINE
     Indication: Mania
     Dosage: FREQUENCY : AT BEDTIME;?
     Route: 048
     Dates: end: 20220420
  4. ZYPREXA [Suspect]
     Active Substance: OLANZAPINE
     Indication: Psychotic disorder

REACTIONS (2)
  - Mania [None]
  - Suicidal ideation [None]

NARRATIVE: CASE EVENT DATE: 20220321
